FAERS Safety Report 11248138 (Version 2)
Quarter: 2015Q2

REPORT INFORMATION
  Report Type: Report from Study
  Country: US (occurrence: None)
  Receive Date: 20150617
  Receipt Date: 20150617
  Transmission Date: 20150821
  Serious: No
  Sender: FDA-Public Use
  Company Number: 2014TASUS000554

PATIENT
  Age: 65 Year
  Sex: Female
  Weight: 83.9 kg

DRUGS (6)
  1. HETLIOZ [Suspect]
     Active Substance: TASIMELTEON
     Indication: CIRCADIAN RHYTHM SLEEP DISORDER
     Route: 048
     Dates: start: 201408
  2. ASA [Concomitant]
     Active Substance: ASPIRIN
  3. LANTUS [Concomitant]
     Active Substance: INSULIN GLARGINE
  4. LISINOPRIL (LISINOPRIL DIHYDRATE) [Concomitant]
  5. COREG [Concomitant]
     Active Substance: CARVEDILOL
  6. POTASSIUM (POTASSIUM CHLORIDE) [Concomitant]

REACTIONS (2)
  - Drug ineffective [None]
  - Middle insomnia [None]

NARRATIVE: CASE EVENT DATE: 201408
